FAERS Safety Report 4979158-1 (Version None)
Quarter: 2006Q2

REPORT INFORMATION
  Report Type: 
  Country: None (occurrence: None)
  Receive Date: 20060418
  Receipt Date: 20060406
  Transmission Date: 20061013
  Serious: Yes (Other)
  Sender: FDA-Public Use
  Company Number: 223845

PATIENT
  Age: 44 Year
  Sex: Female

DRUGS (2)
  1. MABTHERA (RITUXIMAB) CONC FOR SOLUTION FOR INFUSION [Suspect]
  2. MYCOPHENOLATE MOFETIL [Suspect]

REACTIONS (2)
  - RENAL FAILURE [None]
  - SKIN NECROSIS [None]
